FAERS Safety Report 9992111 (Version 1)
Quarter: 2014Q1

REPORT INFORMATION
  Report Type: Spontaneous
  Country: DE (occurrence: DE)
  Receive Date: 20140310
  Receipt Date: 20140310
  Transmission Date: 20141002
  Serious: Yes (Hospitalization, Congenital Anomaly, Other)
  Sender: FDA-Public Use
  Company Number: DE-UCBSA-113905

PATIENT
  Sex: Female
  Weight: 1.66 kg

DRUGS (5)
  1. KEPPRA [Suspect]
     Indication: EPILEPSY
     Dosage: STARTED IN 1ST TRIMESTER OF MOTHER (500-0-1500 MG/DAY)
     Route: 064
     Dates: start: 201210, end: 20130530
  2. CENTRUM MATERNA [Concomitant]
     Indication: PROPHYLAXIS OF NEURAL TUBE DEFECT
     Dosage: 7.1 TO 33.4 GESTATIONAL WEEK (DURING 1ST TRIMESTER)
     Route: 064
     Dates: start: 20121126, end: 20130510
  3. CELESTAN SOLUBILE [Concomitant]
     Indication: MATERNAL THERAPY TO ENHANCE FOETAL LUNG MATURITY
     Dosage: 2ND TRIMESTER (24.2-24.2 GESTATIONAL WEEK)
     Route: 064
     Dates: start: 20130326, end: 20130326
  4. ACICLOSTAD 400 [Concomitant]
     Indication: HERPES VIRUS INFECTION
     Dosage: 3 RD TRIMESTER (27.1-27.1 GESTATIONAL WEEK)
     Route: 064
     Dates: start: 20130415, end: 20130415
  5. RHESONATIV [Concomitant]
     Indication: PROPHYLAXIS AGAINST RH ISOIMMUNISATION
     Dosage: 3RD TRIMESTER (30.5-30.5 GESTATIONAL WEEK)
     Route: 064
     Dates: start: 20130510, end: 20130510

REACTIONS (7)
  - Haemangioma congenital [Not Recovered/Not Resolved]
  - Atrial septal defect [Not Recovered/Not Resolved]
  - Tricuspid valve incompetence [Recovered/Resolved]
  - Low birth weight baby [Unknown]
  - Premature baby [Recovered/Resolved]
  - Respiratory distress [Unknown]
  - Foetal exposure during pregnancy [Recovered/Resolved]
